FAERS Safety Report 4531149-0 (Version None)
Quarter: 2005Q1

REPORT INFORMATION
  Report Type: 
  Country: None (occurrence: None)
  Receive Date: 20041130
  Receipt Date: 20031125
  Transmission Date: 20050727
  Serious: Yes (Disabling)
  Sender: FDA-Public Use
  Company Number: WAES 0309USA02488

PATIENT
  Age: 82 Year
  Sex: Female
  Weight: 71.6683 kg

DRUGS (4)
  1. FOSAMAX [Suspect]
     Indication: OSTEOPOROSIS
     Dosage: 70MG/WKY/PO
     Route: 048
     Dates: start: 20021218, end: 20021225
  2. ATENOLOL [Suspect]
     Indication: HYPERTENSION
     Dosage: 50MG/DAILY/PO
     Route: 048
  3. CALCIUM [Concomitant]
  4. MULTIVITAMIN [Concomitant]

REACTIONS (6)
  - DRUG HYPERSENSITIVITY [None]
  - DRUG INTERACTION [None]
  - LETHARGY [None]
  - PRURITUS GENERALISED [None]
  - SOMNOLENCE [None]
  - URTICARIA GENERALISED [None]
